FAERS Safety Report 19471179 (Version 1)
Quarter: 2021Q2

REPORT INFORMATION
  Report Type: Spontaneous
  Country: US (occurrence: US)
  Receive Date: 20210628
  Receipt Date: 20210628
  Transmission Date: 20210717
  Serious: Yes (Other)
  Sender: FDA-Public Use
  Company Number: None

PATIENT
  Age: 75 Year
  Sex: Female
  Weight: 60.6 kg

DRUGS (2)
  1. IMBRUVICA [Suspect]
     Active Substance: IBRUTINIB
     Indication: CHRONIC LYMPHOCYTIC LEUKAEMIA
     Route: 002
     Dates: start: 20210211, end: 20210306
  2. IMBRUVICA [Suspect]
     Active Substance: IBRUTINIB
     Indication: CHRONIC LYMPHOCYTIC LEUKAEMIA
     Route: 002
     Dates: start: 20210402, end: 20210615

REACTIONS (8)
  - Dehydration [None]
  - Fatigue [None]
  - Syncope [None]
  - Weight decreased [None]
  - Drug intolerance [None]
  - Hypophagia [None]
  - Palpitations [None]
  - Therapy interrupted [None]

NARRATIVE: CASE EVENT DATE: 20210306
